FAERS Safety Report 19493313 (Version 2)
Quarter: 2021Q3

REPORT INFORMATION
  Report Type: Spontaneous
  Country: US (occurrence: US)
  Receive Date: 20210705
  Receipt Date: 20210705
  Transmission Date: 20211014
  Serious: Yes (Life-Threatening, Hospitalization)
  Sender: FDA-Public Use
  Company Number: US-PFIZER INC-2021757471

PATIENT
  Age: 69 Year
  Sex: Female
  Weight: 47.63 kg

DRUGS (6)
  1. VFEND [Suspect]
     Active Substance: VORICONAZOLE
     Indication: FUNGAL INFECTION
     Dosage: 10 ML, 2X/DAY (200MG/5ML)
  2. VFEND [Suspect]
     Active Substance: VORICONAZOLE
     Indication: SCEDOSPORIUM INFECTION
  3. VFEND [Suspect]
     Active Substance: VORICONAZOLE
     Indication: PROPHYLAXIS
  4. VFEND [Suspect]
     Active Substance: VORICONAZOLE
     Indication: PROPHYLAXIS
  5. VFEND [Suspect]
     Active Substance: VORICONAZOLE
     Indication: FUNGAL INFECTION
     Dosage: 200 MG
     Route: 048
  6. VFEND [Suspect]
     Active Substance: VORICONAZOLE
     Indication: SCEDOSPORIUM INFECTION
     Dosage: 7.5 ML, 2X/DAY (200MG/5ML)

REACTIONS (3)
  - Respiratory failure [Unknown]
  - Cardiac arrest [Unknown]
  - Pneumonia [Unknown]
